FAERS Safety Report 8041247 (Version 3)
Quarter: 2013Q3

REPORT INFORMATION
  Report Type: Spontaneous
  Country: US (occurrence: US)
  Receive Date: 20110718
  Receipt Date: 20130712
  Transmission Date: 20140515
  Serious: No
  Sender: FDA-Public Use
  Company Number: US-BIOGENIDEC-2011BI025284

PATIENT
  Age: 27 Year
  Sex: Female

DRUGS (1)
  1. TYSABRI [Suspect]
     Indication: MULTIPLE SCLEROSIS
     Route: 042
     Dates: start: 20110705

REACTIONS (6)
  - Poor venous access [Recovered/Resolved]
  - Bone disorder [Not Recovered/Not Resolved]
  - Flushing [Not Recovered/Not Resolved]
  - Pruritus [Recovered/Resolved]
  - Fatigue [Not Recovered/Not Resolved]
  - Urticaria [Not Recovered/Not Resolved]
